FAERS Safety Report 9624759 (Version 1)
Quarter: 2013Q4

REPORT INFORMATION
  Report Type: Spontaneous
  Country: DE (occurrence: DE)
  Receive Date: 20131015
  Receipt Date: 20131015
  Transmission Date: 20140711
  Serious: Yes (Hospitalization, Congenital Anomaly)
  Sender: FDA-Public Use
  Company Number: DE-MYLANLABS-2013S1022206

PATIENT
  Sex: Female
  Weight: 3.16 kg

DRUGS (2)
  1. LAMOTRIGINE [Suspect]
     Route: 064
  2. FOLIO [Concomitant]
     Route: 064

REACTIONS (4)
  - Atrial septal defect [Unknown]
  - Exposure during pregnancy [Recovered/Resolved]
  - Duodenal stenosis [Recovered/Resolved with Sequelae]
  - Peritoneal adhesions [Recovered/Resolved with Sequelae]
